APPROVED DRUG PRODUCT: CABERGOLINE
Active Ingredient: CABERGOLINE
Strength: 0.5MG
Dosage Form/Route: TABLET;ORAL
Application: A077843 | Product #001
Applicant: IMPAX LABORATORIES INC
Approved: Jul 3, 2007 | RLD: No | RS: No | Type: DISCN